FAERS Safety Report 4831968-7 (Version None)
Quarter: 2005Q4

REPORT INFORMATION
  Report Type: 
  Country: None (occurrence: None)
  Receive Date: 20051116
  Receipt Date: 20051031
  Transmission Date: 20060501
  Serious: Yes (Other)
  Sender: FDA-Public Use
  Company Number: 2005-DE-04535GD

PATIENT
  Sex: Male

DRUGS (3)
  1. ZIDOVUDINE [Suspect]
     Dosage: IU
     Route: 015
  2. NELFINAVIR (NELFINAVIR) [Suspect]
     Dosage: IU
     Route: 015
  3. LAMIVUDINE [Suspect]
     Dosage: IU
     Route: 015

REACTIONS (3)
  - CAESAREAN SECTION [None]
  - CONGENITAL HIV INFECTION [None]
  - DRUG EXPOSURE DURING PREGNANCY [None]
